FAERS Safety Report 12678653 (Version 1)
Quarter: 2016Q3

REPORT INFORMATION
  Report Type: Spontaneous
  Country: US (occurrence: US)
  Receive Date: 20160823
  Receipt Date: 20160823
  Transmission Date: 20161109
  Serious: Yes (Other)
  Sender: FDA-Public Use
  Company Number: US-BEH-2016072834

PATIENT
  Sex: Female
  Weight: 56.69 kg

DRUGS (11)
  1. ATORVASTATIN [Concomitant]
     Active Substance: ATORVASTATIN
  2. NORVASC [Concomitant]
     Active Substance: AMLODIPINE BESYLATE
  3. BERINERT [Suspect]
     Active Substance: HUMAN C1-ESTERASE INHIBITOR
     Indication: HEREDITARY ANGIOEDEMA
     Dosage: 1500 IU, PRN
     Route: 042
     Dates: start: 20160419
  4. ASPIRIN. [Concomitant]
     Active Substance: ASPIRIN
  5. CO-Q10-CHLORELLA [Concomitant]
  6. MULTIVITAMINS [Concomitant]
     Active Substance: VITAMINS
  7. LEXAPRO [Concomitant]
     Active Substance: ESCITALOPRAM OXALATE
  8. FISH OIL [Concomitant]
     Active Substance: FISH OIL
  9. TRAZODONE [Concomitant]
     Active Substance: TRAZODONE HYDROCHLORIDE
  10. HYDROCHLOROTHIAZIDE. [Concomitant]
     Active Substance: HYDROCHLOROTHIAZIDE
  11. ZEGERID                            /00661201/ [Concomitant]
     Active Substance: OMEPRAZOLE

REACTIONS (2)
  - Hereditary angioedema [Unknown]
  - Bronchitis [Unknown]
